FAERS Safety Report 6108066-8 (Version None)
Quarter: 2009Q1

REPORT INFORMATION
  Report Type: 
  Country: None (occurrence: None)
  Receive Date: 20090304
  Receipt Date: 20080218
  Transmission Date: 20090719
  Serious: Yes (Life-Threatening, Hospitalization, Other)
  Sender: FDA-Public Use
  Company Number: US-000305

PATIENT
  Age: 82 Year
  Sex: Female
  Weight: 75 kg

DRUGS (12)
  1. ISOVUE-300 [Suspect]
     Indication: PERCUTANEOUS CORONARY INTERVENTION
     Dosage: 150ML QD INTRA-ARTERIAL
     Route: 013
     Dates: start: 20080110, end: 20080110
  2. ANGIOMAX [Suspect]
     Indication: PERCUTANEOUS CORONARY INTERVENTION
     Dosage: 11.3ML QD INTRAVENOUS BOLUS, 2ML INTRAVENOUS DRIP
     Route: 040
     Dates: start: 20080110, end: 20080110
  3. ANGIOMAX [Suspect]
     Indication: PERCUTANEOUS CORONARY INTERVENTION
     Dosage: 11.3ML QD INTRAVENOUS BOLUS, 2ML INTRAVENOUS DRIP
     Route: 040
     Dates: start: 20080110, end: 20080110
  4. ... [Concomitant]
  5. HEPARIN SODIUM W/SODIUM CHLORIDE (HEPARIN SODUIM;SODIUM CHLORIDE) [Concomitant]
  6. MIDAZOLAM HCL [Concomitant]
  7. FENTANYL CITRATE [Concomitant]
  8. PLAVIX [Concomitant]
  9. ASPIRIN [Concomitant]
  10. FLUVASTATIN SODIUM [Concomitant]
  11. ATENOLOL [Concomitant]
  12. ACETAMINOPHEN WITH DIPHENYDRAMINE (DIPHENYDRAMINE;PARACETAMOL) [Concomitant]

REACTIONS (8)
  - BLOOD PRESSURE INCREASED [None]
  - CARDIAC ARREST [None]
  - ELECTROCARDIOGRAM ST SEGMENT ELEVATION [None]
  - HYPERSENSITIVITY [None]
  - MEAN ARTERIAL PRESSURE INCREASED [None]
  - TACHYCARDIA [None]
  - TONGUE HAEMORRHAGE [None]
  - VENTRICULAR FIBRILLATION [None]
